FAERS Safety Report 13406221 (Version 1)
Quarter: 2017Q2

REPORT INFORMATION
  Report Type: Spontaneous
  Country: US (occurrence: US)
  Receive Date: 20170405
  Receipt Date: 20170405
  Transmission Date: 20170830
  Serious: No
  Sender: FDA-Public Use
  Company Number: US-009507513-1703USA010677

PATIENT
  Sex: Female

DRUGS (1)
  1. NEXPLANON [Suspect]
     Active Substance: ETONOGESTREL
     Dosage: 1 IMPLANT (REPORTED AS ^ROD^), EVERY 3 YEARS
     Route: 059
     Dates: start: 201609

REACTIONS (3)
  - Rash erythematous [Unknown]
  - Amenorrhoea [Unknown]
  - Implant site infection [Unknown]
